FAERS Safety Report 14948464 (Version 2)
Quarter: 2018Q2

REPORT INFORMATION
  Report Type: Spontaneous
  Country: FR (occurrence: FR)
  Receive Date: 20180529
  Receipt Date: 20180530
  Transmission Date: 20180711
  Serious: Yes (Congenital Anomaly)
  Sender: FDA-Public Use
  Company Number: FR-TEVA-2018-FR-898862

PATIENT
  Age: 0 Day
  Sex: Male
  Weight: 2.28 kg

DRUGS (6)
  1. PIVALONE (TIXOCORTOL PIVALATE) [Suspect]
     Active Substance: TIXOCORTOL PIVALATE
     Route: 064
     Dates: start: 201403
  2. DOLIPRANE [Suspect]
     Active Substance: ACETAMINOPHEN
     Route: 064
     Dates: start: 201403
  3. SPECIAFOLDINE 0,4 MG, COMPRIM? [Suspect]
     Active Substance: FOLIC ACID
     Indication: PREGNANCY
     Dosage: 1 DOSAGE FORMS DAILY;
     Route: 064
     Dates: start: 20140213, end: 201405
  4. PRIMPERAN [Suspect]
     Active Substance: METOCLOPRAMIDE HYDROCHLORIDE
     Indication: VOMITING
     Dosage: 3 DOSAGE FORMS DAILY;
     Route: 064
     Dates: start: 20140327, end: 201406
  5. AMOXICILLIN. [Suspect]
     Active Substance: AMOXICILLIN
     Route: 064
     Dates: start: 201403
  6. DUPHASTON [Concomitant]
     Active Substance: DYDROGESTERONE
     Indication: MENSTRUATION IRREGULAR
     Dosage: 1 DF DE J16 ? J25
     Route: 064
     Dates: start: 201402, end: 201402

REACTIONS (6)
  - Aplasia cutis congenita [Recovered/Resolved with Sequelae]
  - Premature baby [Recovered/Resolved]
  - Micrognathia [Unknown]
  - Hypertelorism of orbit [Unknown]
  - Maternal drugs affecting foetus [None]
  - Hypospadias [Recovered/Resolved]

NARRATIVE: CASE EVENT DATE: 20141009
